FAERS Safety Report 13982881 (Version 11)
Quarter: 2017Q4

REPORT INFORMATION
  Report Type: Spontaneous
  Country: US (occurrence: US)
  Receive Date: 20170918
  Receipt Date: 20171222
  Transmission Date: 20180321
  Serious: Yes (Hospitalization, Other)
  Sender: FDA-Public Use
  Company Number: US-GLAXOSMITHKLINE-US2017GSK143598

PATIENT
  Age: 50 Year
  Sex: Female

DRUGS (15)
  1. XARELTO [Concomitant]
     Active Substance: RIVAROXABAN
  2. SILDENAFIL CITRATE. [Concomitant]
     Active Substance: SILDENAFIL CITRATE
  3. COUMADIN [Concomitant]
     Active Substance: WARFARIN SODIUM
  4. FLOLAN [Suspect]
     Active Substance: EPOPROSTENOL SODIUM
     Indication: PULMONARY ARTERIAL HYPERTENSION
     Dosage: UNK
  5. FLOLAN [Suspect]
     Active Substance: EPOPROSTENOL SODIUM
     Indication: PULMONARY ARTERIAL HYPERTENSION
     Dosage: 40 DF, CO
     Route: 042
  6. FLOLAN [Suspect]
     Active Substance: EPOPROSTENOL SODIUM
     Dosage: 40 DF, CO
  7. FLOLAN [Suspect]
     Active Substance: EPOPROSTENOL SODIUM
     Dosage: 30 DF, UNK
  8. FLOLAN [Suspect]
     Active Substance: EPOPROSTENOL SODIUM
     Indication: PULMONARY ARTERIAL HYPERTENSION
     Dosage: UNK
     Dates: start: 20161115
  9. FLOLAN [Suspect]
     Active Substance: EPOPROSTENOL SODIUM
     Dosage: UNK
  10. REVATIO [Concomitant]
     Active Substance: SILDENAFIL CITRATE
  11. REMODULIN [Concomitant]
     Active Substance: TREPROSTINIL
  12. FLOLAN [Suspect]
     Active Substance: EPOPROSTENOL SODIUM
     Indication: PULMONARY ARTERIAL HYPERTENSION
     Dosage: 41 NG/KG/MIN, CO
     Route: 042
     Dates: start: 20090814
  13. LETAIRIS [Concomitant]
     Active Substance: AMBRISENTAN
  14. FLOLAN [Suspect]
     Active Substance: EPOPROSTENOL SODIUM
     Dosage: 36 DF, CO
  15. FLOLAN [Suspect]
     Active Substance: EPOPROSTENOL SODIUM
     Dosage: 38.8 DF, CO
     Route: 042

REACTIONS (18)
  - Pyrexia [Unknown]
  - Catheter site inflammation [Unknown]
  - Adverse event [Unknown]
  - Intensive care [Unknown]
  - Enteritis infectious [Unknown]
  - Complication associated with device [Unknown]
  - Drug dose omission [Unknown]
  - Diarrhoea [Unknown]
  - Device dislocation [Unknown]
  - Device related infection [Unknown]
  - Suture removal [Unknown]
  - Staphylococcal infection [Unknown]
  - Central venous catheterisation [Unknown]
  - Hospitalisation [Unknown]
  - Therapy cessation [Unknown]
  - Catheter site pruritus [Unknown]
  - Catheter site dryness [Unknown]
  - Central venous catheter removal [Unknown]

NARRATIVE: CASE EVENT DATE: 201709
